FAERS Safety Report 12416312 (Version 1)
Quarter: 2016Q2

REPORT INFORMATION
  Report Type: Spontaneous
  Country: GB (occurrence: GB)
  Receive Date: 20160530
  Receipt Date: 20160530
  Transmission Date: 20160815
  Serious: Yes (Disabling, Other)
  Sender: FDA-Public Use
  Company Number: GB-PFIZER INC-2016278086

PATIENT
  Age: 38 Year
  Sex: Male

DRUGS (4)
  1. PROPRANOLOL [Suspect]
     Active Substance: PROPRANOLOL\PROPRANOLOL HYDROCHLORIDE
     Dosage: 2 DAYS OF 10 MG AND 1 DAY OF 5MG
     Route: 048
     Dates: start: 20160316, end: 20160320
  2. ATENOLOL. [Suspect]
     Active Substance: ATENOLOL
     Indication: ANXIETY
     Route: 048
     Dates: start: 20160321, end: 20160329
  3. VENLAFAXINE [Concomitant]
     Active Substance: VENLAFAXINE HYDROCHLORIDE
  4. PROPRANOLOL [Suspect]
     Active Substance: PROPRANOLOL\PROPRANOLOL HYDROCHLORIDE
     Indication: ANXIETY
     Dosage: 10 MG THREE TIMES A DAY
     Route: 048
     Dates: start: 20160316, end: 20160321

REACTIONS (6)
  - Fatigue [Unknown]
  - Palpitations [Recovered/Resolved with Sequelae]
  - Hypertension [Unknown]
  - Feeling hot [Unknown]
  - Agitation [Unknown]
  - Lethargy [Unknown]
